FAERS Safety Report 19351698 (Version 1)
Quarter: 2021Q2

REPORT INFORMATION
  Report Type: Report from Study
  Country: ES (occurrence: ES)
  Receive Date: 20210531
  Receipt Date: 20210531
  Transmission Date: 20210717
  Serious: Yes (Hospitalization)
  Sender: FDA-Public Use
  Company Number: ES-ROCHE-2835357

PATIENT
  Age: 71 Year
  Sex: Female
  Weight: 55 kg

DRUGS (4)
  1. ATEZOLIZUMAB. [Suspect]
     Active Substance: ATEZOLIZUMAB
     Indication: PLEURAL MESOTHELIOMA MALIGNANT
     Dosage: ON 09/APR/2021, SHE RECEIVED THE MOST RECENT DOSE OF ATEZOLIZUMAB?D1Q3W; I.V.; 1200 MG/20 ML
     Route: 042
     Dates: start: 20201016
  2. CARBOPLATIN. [Suspect]
     Active Substance: CARBOPLATIN
     Indication: PLEURAL MESOTHELIOMA MALIGNANT
     Dosage: ON 08/JAN/2021, SHE RECEIVED THE MOST RECENT DOSE OF CARBOPLATIN?D1Q3W; 4?6 CYCLES; I.V.
     Route: 042
     Dates: start: 20201016
  3. BEVACIZUMAB. [Suspect]
     Active Substance: BEVACIZUMAB
     Indication: PLEURAL MESOTHELIOMA MALIGNANT
     Dosage: ON 29/JAN/2021, SHE RECEIVED THE MOST RECENT DOSE OF BEVACIZUMAB.
     Route: 042
     Dates: start: 20201016
  4. PEMETREXED. [Suspect]
     Active Substance: PEMETREXED
     Indication: PLEURAL MESOTHELIOMA MALIGNANT
     Dosage: ON 08/JAN/2021, SHE RECEIVED THE MOST RECENT DOSE OF PEMETREXED?D1Q3W; 4?6 CYCLES; I.V.
     Route: 042
     Dates: start: 20201016

REACTIONS (1)
  - Renal disorder [Recovered/Resolved]

NARRATIVE: CASE EVENT DATE: 20210505
